FAERS Safety Report 18159128 (Version 1)
Quarter: 2020Q3

REPORT INFORMATION
  Report Type: Spontaneous
  Country: US (occurrence: US)
  Receive Date: 20200817
  Receipt Date: 20200817
  Transmission Date: 20201103
  Serious: No
  Sender: FDA-Public Use
  Company Number: US-CHIESI USA, INC.-US-2020CHI000114

PATIENT

DRUGS (3)
  1. KENGREAL [Suspect]
     Active Substance: CANGRELOR
     Indication: ANTIPLATELET THERAPY
     Dosage: 0.75 ?G/KG/MIN, UNK
     Route: 042
     Dates: start: 20200202, end: 202002
  2. KENGREAL [Suspect]
     Active Substance: CANGRELOR
     Indication: OFF LABEL USE
  3. PLAVIX [Concomitant]
     Active Substance: CLOPIDOGREL BISULFATE
     Indication: PRODUCT USED FOR UNKNOWN INDICATION
     Dosage: 75 MG, QD
     Dates: end: 20200201

REACTIONS (2)
  - Off label use [Unknown]
  - Underdose [Unknown]

NARRATIVE: CASE EVENT DATE: 20200202
